FAERS Safety Report 10443505 (Version 1)
Quarter: 2014Q3

REPORT INFORMATION
  Report Type: Spontaneous
  Country: US (occurrence: US)
  Receive Date: 20140910
  Receipt Date: 20140910
  Transmission Date: 20150326
  Serious: No
  Sender: FDA-Public Use
  Company Number: US-BIOGENIDEC-2014BI091364

PATIENT
  Sex: Female

DRUGS (2)
  1. AVONEX [Suspect]
     Active Substance: INTERFERON BETA-1A
     Indication: PRODUCT USED FOR UNKNOWN INDICATION
     Route: 030
     Dates: start: 2002, end: 2005
  2. COPAXONE [Concomitant]
     Active Substance: GLATIRAMER ACETATE
     Dates: start: 2005, end: 2005

REACTIONS (5)
  - Diplopia [Recovered/Resolved]
  - Tunnel vision [Recovered/Resolved]
  - Multiple sclerosis relapse [Unknown]
  - Mobility decreased [Unknown]
  - Cardiac flutter [Unknown]
